FAERS Safety Report 8586718-8 (Version None)
Quarter: 2012Q3

REPORT INFORMATION
  Report Type: 
  Country: None (occurrence: None)
  Receive Date: 20120810
  Receipt Date: 20120803
  Transmission Date: 20120928
  Serious: Yes (Hospitalization)
  Sender: FDA-Public Use
  Company Number: US-B.I. PHARMACEUTICALS,INC./RIDGEFIELD-2012-BP-17536BP

PATIENT
  Sex: Female
  Weight: 59 kg

DRUGS (8)
  1. PRADAXA [Suspect]
     Indication: ATRIAL FIBRILLATION
     Dosage: 150 MG
     Route: 048
     Dates: start: 20100101
  2. PERCEIVA [Concomitant]
     Indication: MACULAR DEGENERATION
  3. ATENOLOL [Concomitant]
     Indication: BLOOD PRESSURE
     Dosage: 50 MG
     Route: 048
  4. VITAMIN D [Concomitant]
     Indication: VITAMIN SUPPLEMENTATION
     Dosage: 800 MG
     Route: 048
  5. SPIRONOLACTONE [Concomitant]
     Indication: FLUID RETENTION
     Dosage: 25 MG
     Route: 048
  6. DIGOXIN [Concomitant]
     Indication: HEART RATE
     Dosage: 0.125 MG
     Route: 048
  7. FUROSEMIDE [Concomitant]
     Indication: FLUID RETENTION
     Dosage: 10 MG
     Route: 048
  8. JOINT SILVER VITAMINS [Concomitant]
     Indication: ARTHRALGIA
     Route: 048
     Dates: start: 20020101

REACTIONS (2)
  - RASH MACULAR [None]
  - CEREBROVASCULAR ACCIDENT [None]
